FAERS Safety Report 4435228-8 (Version None)
Quarter: 2004Q3

REPORT INFORMATION
  Report Type: 
  Country: None (occurrence: None)
  Receive Date: 20040827
  Receipt Date: 20040609
  Transmission Date: 20050211
  Serious: Yes (Other)
  Sender: FDA-Public Use
  Company Number: JP-GLAXOSMITHKLINE-B0335352A

PATIENT
  Age: 21 Year
  Sex: Female

DRUGS (3)
  1. VALTREX [Suspect]
     Indication: HERPES ZOSTER
     Dosage: 1000MG THREE TIMES PER DAY
     Route: 048
     Dates: start: 20040515, end: 20040517
  2. SRENDAM [Concomitant]
     Indication: HERPES ZOSTER
     Route: 061
     Dates: start: 20040515
  3. HIRUDOID [Concomitant]
     Indication: DERMATITIS
     Route: 061
     Dates: start: 20030502

REACTIONS (3)
  - DEPRESSED LEVEL OF CONSCIOUSNESS [None]
  - HEADACHE [None]
  - PYREXIA [None]
